FAERS Safety Report 10597177 (Version 1)
Quarter: 2014Q4

REPORT INFORMATION
  Report Type: Spontaneous
  Country: IT (occurrence: IT)
  Receive Date: 20141121
  Receipt Date: 20141121
  Transmission Date: 20150529
  Serious: Yes (Death, Other)
  Sender: FDA-Public Use
  Company Number: IT-CIPLA LTD.-2014IT02042

PATIENT

DRUGS (8)
  1. EPIRUBICIN [Suspect]
     Active Substance: EPIRUBICIN
     Indication: SYNOVIAL SARCOMA
     Dosage: 60 MG/M2,ON DAY 1 AND 2 FOR EVERY 21 DAYS, FOR THREE CYCLES
     Dates: end: 200909
  2. TRABECTEDIN [Suspect]
     Active Substance: TRABECTEDIN
     Indication: METASTASES TO LUNG
     Dosage: 1.3 MG/M2
  3. SORAFENIB [Suspect]
     Active Substance: SORAFENIB
  4. IFOSFAMIDE. [Suspect]
     Active Substance: IFOSFAMIDE
     Dosage: 1 G/M2/DAILY,ALONG WITH AN EQUAL DOSE OF MESNA
  5. RADIOTHERAPY [Suspect]
     Active Substance: RADIATION THERAPY
     Dosage: UNK
     Dates: end: 200909
  6. TRABECTEDIN [Suspect]
     Active Substance: TRABECTEDIN
     Dosage: 1.1 MG/M2
  7. IFOSFAMIDE. [Suspect]
     Active Substance: IFOSFAMIDE
     Indication: SYNOVIAL SARCOMA
     Dosage: 3 G/M2 ,ON DAYS 1-3, EVERY 21 DAYS, FOR THREE CYCLES
     Dates: end: 200909
  8. PROPHYLACTIC GRANULOCYTE COLONY STIMULATING FACTOR [Concomitant]
     Indication: NEUTROPENIA
     Dosage: UNK
     Dates: end: 200909

REACTIONS (3)
  - Disease recurrence [Unknown]
  - Metastases to lung [Unknown]
  - Death [Fatal]
